FAERS Safety Report 9377230 (Version 3)
Quarter: 2013Q3

REPORT INFORMATION
  Report Type: Report from Study
  Country: US (occurrence: US)
  Receive Date: 20130701
  Receipt Date: 20130906
  Transmission Date: 20140515
  Serious: Yes (Life-Threatening, Disabling, Other)
  Sender: FDA-Public Use
  Company Number: US-ASTELLAS-2013EU004187

PATIENT
  Age: 58 Year
  Sex: Male
  Weight: 112.49 kg

DRUGS (14)
  1. BLINDED ENZALUTAMIDE [Suspect]
     Indication: PROSTATE CANCER
     Dosage: UNK
     Route: 048
     Dates: start: 20130225, end: 20130529
  2. FIRMAGON                           /01764801/ [Concomitant]
     Indication: PROSTATE CANCER
     Dosage: 80 MG, MONTHLY
     Route: 058
     Dates: start: 20100915
  3. CELEXA                             /00582602/ [Concomitant]
     Indication: DEPRESSION
     Dosage: 40 MG, UID/QD
     Route: 048
     Dates: start: 1998
  4. NEURONTIN [Concomitant]
     Indication: DEPRESSION
     Dosage: 800 MG, UID/QD
     Route: 048
     Dates: start: 2000
  5. RITALIN [Concomitant]
     Indication: ATTENTION DEFICIT/HYPERACTIVITY DISORDER
     Dosage: 10 MG, UID/QD
     Route: 048
     Dates: start: 2000
  6. CALCIUM                            /00060701/ [Concomitant]
     Indication: ROUTINE HEALTH MAINTENANCE
     Dosage: UNK
     Route: 048
     Dates: start: 2004
  7. VITAMIN D                          /00107901/ [Concomitant]
     Indication: ROUTINE HEALTH MAINTENANCE
     Dosage: UNK
     Route: 048
     Dates: start: 2004
  8. FLONASE [Concomitant]
     Indication: HYPERSENSITIVITY
     Dosage: UNK
     Route: 050
     Dates: start: 1970
  9. AUGMENTIN                          /00756801/ [Concomitant]
     Indication: SINUSITIS
     Dosage: 500 MG, BID
     Route: 048
     Dates: start: 20130225
  10. XGEVA [Concomitant]
     Indication: ROUTINE HEALTH MAINTENANCE
     Dosage: 120 MG, MONTHLY
     Route: 058
     Dates: start: 20130225
  11. NORCO [Concomitant]
     Indication: ARTHROSCOPIC SURGERY
     Dosage: 325 MG, PRN
     Route: 048
     Dates: start: 20130322
  12. ADVIL                              /00044201/ [Concomitant]
     Indication: BACK PAIN
     Dosage: UNK MG, PRN
     Route: 048
  13. LIPITOR [Concomitant]
     Indication: HYPERCHOLESTEROLAEMIA
     Dosage: 40 MG, UID/QD
     Route: 048
     Dates: start: 1999
  14. WELLBUTRIN [Concomitant]
     Indication: DEPRESSION
     Dosage: 200 MG, UID/QD
     Route: 048
     Dates: start: 201304, end: 20130501

REACTIONS (4)
  - Liver function test abnormal [Recovered/Resolved]
  - Urosepsis [Recovered/Resolved]
  - Anaemia [Not Recovered/Not Resolved]
  - Anaemia [Not Recovered/Not Resolved]
